FAERS Safety Report 4954473-6 (Version None)
Quarter: 2006Q1

REPORT INFORMATION
  Report Type: 
  Country: None (occurrence: None)
  Receive Date: 20060322
  Receipt Date: 20060309
  Transmission Date: 20060701
  Serious: Yes (Death, Other)
  Sender: FDA-Public Use
  Company Number: 2006BH004785

PATIENT
  Age: 15 Year
  Sex: Male

DRUGS (7)
  1. DIANEAL [Suspect]
     Indication: RENAL FAILURE CHRONIC
     Dosage: 1000 ML; IP
     Route: 033
     Dates: start: 19920311
  2. SOMATROPIN (SOMATROPIN) [Suspect]
     Indication: RENAL FAILURE CHRONIC
     Dosage: 2 IU; EVERY DAY; SC
     Route: 058
     Dates: start: 19961112, end: 19991129
  3. ALFAROL [Concomitant]
  4. DEPAKENE [Concomitant]
  5. CALCIUM CARBONATE [Concomitant]
  6. KAYEXALATE [Concomitant]
  7. ISCOTIN [Concomitant]

REACTIONS (2)
  - PROCEDURAL COMPLICATION [None]
  - SCLEROSING ENCAPSULATING PERITONITIS [None]
